FAERS Safety Report 8196247-1 (Version None)
Quarter: 2012Q1

REPORT INFORMATION
  Report Type: 
  Country: None (occurrence: None)
  Receive Date: 20120306
  Receipt Date: 20120221
  Transmission Date: 20120608
  Serious: Yes (Other)
  Sender: FDA-Public Use
  Company Number: CA-1190704

PATIENT
  Age: 7 Year
  Sex: Female

DRUGS (7)
  1. MAXIDEX [Suspect]
     Indication: ULCERATIVE KERATITIS
     Dosage: EVERY NIGHT  OPHTHALMIC
     Route: 047
  2. METHOTREXATE [Concomitant]
  3. PREDNISOLONE ACETATE [Suspect]
     Indication: ULCERATIVE KERATITIS
     Dosage: EVERY 2 HOURS OPHTHALMIC), (TAPER DURING THE COURSE OF 4 MONTHS OPHTHALMIC)
     Route: 047
  4. ATROPINE [Suspect]
     Indication: ULCERATIVE KERATITIS
     Dosage: TWICE DAILY OPHTHALMIC
     Route: 047
  5. PREDNISONE [Concomitant]
  6. FOLIC ACID [Concomitant]
  7. GATIFLOXACIN [Concomitant]

REACTIONS (6)
  - PNEUMONIA [None]
  - KERATITIS [None]
  - CATARACT SUBCAPSULAR [None]
  - MOUTH ULCERATION [None]
  - OCULAR HYPERTENSION [None]
  - ANTINUCLEAR ANTIBODY POSITIVE [None]
